FAERS Safety Report 9407262 (Version 1)
Quarter: 2013Q3

REPORT INFORMATION
  Report Type: Spontaneous
  Country: US (occurrence: None)
  Receive Date: 20130705
  Receipt Date: 20130705
  Transmission Date: 20140515
  Serious: Yes (Death)
  Sender: FDA-Public Use
  Company Number: 09-AUR-09790

PATIENT
  Age: 33 Year
  Sex: Female

DRUGS (8)
  1. ZIDOVUDINE (ZIDOVUDINE) [Suspect]
     Indication: ASPERGILLUS INFECTION
  2. LAMIVUDINE [Suspect]
     Indication: ASPERGILLUS INFECTION
  3. SAQUINAVIR [Suspect]
     Indication: ASPERGILLUS INFECTION
  4. RITONAVIR (RITONAVIR) [Suspect]
     Indication: ASPERGILLUS INFECTION
  5. ITRACONAZOLE [Suspect]
     Indication: ASPERGILLUS INFECTION
  6. RIFAMPICIN [Suspect]
     Indication: TUBERCULOSIS
  7. ISONIAZIDE [Suspect]
     Indication: TUBERCULOSIS
  8. PYRAZINAMIDE [Suspect]
     Indication: TUBERCULOSIS

REACTIONS (10)
  - Anaemia [None]
  - Leukopenia [None]
  - Sinusitis [None]
  - Candida infection [None]
  - Productive cough [None]
  - Tuberculosis [None]
  - Aspergilloma [None]
  - Bacterial infection [None]
  - Pneumonia [None]
  - Intervertebral disc disorder [None]
